FAERS Safety Report 10637037 (Version 3)
Quarter: 2015Q2

REPORT INFORMATION
  Report Type: Other
  Country: IT (occurrence: IT)
  Receive Date: 20141208
  Receipt Date: 20150603
  Transmission Date: 20150821
  Serious: Yes (Hospitalization)
  Sender: FDA-Public Use
  Company Number: IT-SUN PHARMACEUTICAL INDUSTRIES LTD-2014SUN02781

PATIENT
  Age: 16 Year
  Sex: Female

DRUGS (10)
  1. TRIMETON [Concomitant]
     Active Substance: CHLORPHENIRAMINE MALEATE
  2. LANSOPRAZOLE. [Concomitant]
     Active Substance: LANSOPRAZOLE
  3. LEVETIRACETAM. [Concomitant]
     Active Substance: LEVETIRACETAM
  4. OXCARBAMAZEPINE [Concomitant]
     Active Substance: OXCARBAZEPINE
  5. TEMOZOLOMIDE. [Suspect]
     Active Substance: TEMOZOLOMIDE
     Indication: BRAIN NEOPLASM MALIGNANT
     Dosage: 220 MG CYCLICAL
     Route: 048
     Dates: start: 20121115, end: 20121222
  6. TEMOZOLOMIDE. [Suspect]
     Active Substance: TEMOZOLOMIDE
     Dosage: UNK
     Route: 048
  7. BEVACIZUMAB [Suspect]
     Active Substance: BEVACIZUMAB
     Indication: BRAIN NEOPLASM MALIGNANT
     Dosage: 478 MG CYCLICAL
     Route: 042
     Dates: start: 20120906
  8. SOLU-CORTEF [Concomitant]
     Active Substance: HYDROCORTISONE SODIUM SUCCINATE
  9. SOLDESAM [Concomitant]
     Active Substance: DEXAMETHASONE
  10. ZOFRAN [Concomitant]
     Active Substance: ONDANSETRON HYDROCHLORIDE

REACTIONS (3)
  - Petechiae [Recovered/Resolved]
  - Thrombocytopenia [Recovered/Resolved]
  - Epistaxis [Recovered/Resolved]

NARRATIVE: CASE EVENT DATE: 20130111
